FAERS Safety Report 6742635-7 (Version None)
Quarter: 2010Q2

REPORT INFORMATION
  Report Type: 
  Country: None (occurrence: None)
  Receive Date: 20100526
  Receipt Date: 20100525
  Transmission Date: 20101027
  Serious: Yes (Hospitalization)
  Sender: FDA-Public Use
  Company Number: ES-MERCK-1005ESP00040

PATIENT
  Age: 62 Year
  Sex: Male

DRUGS (3)
  1. SINGULAIR [Suspect]
     Indication: ASTHMA
     Route: 048
     Dates: end: 20090701
  2. CORTICOSTEROIDS (UNSPECIFIED) [Concomitant]
     Indication: RHINITIS
     Route: 065
     Dates: start: 20080411
  3. FLUTICASONE PROPIONATE AND SALMETEROL XINAFOATE [Concomitant]
     Indication: ASTHMA
     Route: 055
     Dates: start: 20080411

REACTIONS (1)
  - ALLERGIC GRANULOMATOUS ANGIITIS [None]
